FAERS Safety Report 9538044 (Version 1)
Quarter: 2013Q3

REPORT INFORMATION
  Report Type: Spontaneous
  Country: FI (occurrence: FI)
  Receive Date: 20130920
  Receipt Date: 20130920
  Transmission Date: 20140515
  Serious: Yes (Hospitalization)
  Sender: FDA-Public Use
  Company Number: FI-AMGEN-FINSP2013065950

PATIENT
  Age: 64 Year
  Sex: Female

DRUGS (4)
  1. ENBREL [Suspect]
     Indication: PSORIATIC ARTHROPATHY
     Dosage: 50 MG, WEEKLY
     Route: 058
     Dates: start: 20130414, end: 20130808
  2. MELOXICAM [Concomitant]
     Indication: PSORIATIC ARTHROPATHY
     Dosage: 15 MG, AS NEEDED
     Route: 048
  3. CALCICHEW-D3 FORTE [Concomitant]
     Indication: OSTEOPOROSIS
     Dosage: 2 DF, DAILY
     Route: 048
  4. ESOMEPRAZOLE [Concomitant]
     Indication: DYSPEPSIA
     Dosage: 20 MG, AS NEEDED
     Route: 048

REACTIONS (5)
  - Pyrexia [Recovered/Resolved]
  - Lung infiltration [Not Recovered/Not Resolved]
  - C-reactive protein increased [Recovering/Resolving]
  - Flank pain [Recovered/Resolved]
  - Cough [Recovered/Resolved]
